FAERS Safety Report 18173470 (Version 1)
Quarter: 2020Q3

REPORT INFORMATION
  Report Type: Spontaneous
  Country: US (occurrence: US)
  Receive Date: 20200819
  Receipt Date: 20200819
  Transmission Date: 20201103
  Serious: Yes (Death, Other)
  Sender: FDA-Public Use
  Company Number: US-PURDUE-USA-2020-0161590

PATIENT
  Sex: Male
  Weight: 109.75 kg

DRUGS (2)
  1. BUPRENORPHINE TRANSDERMAL PATCH (SIMILAR TO NDA 21?306) [Suspect]
     Active Substance: BUPRENORPHINE
     Indication: PRODUCT USED FOR UNKNOWN INDICATION
     Dosage: UNK
     Route: 062
  2. OXYCODONE HYDROCHLORIDE (SIMILAR TO NDA 22?272) [Suspect]
     Active Substance: OXYCODONE HYDROCHLORIDE
     Indication: PRODUCT USED FOR UNKNOWN INDICATION
     Dosage: UNK
     Route: 048

REACTIONS (16)
  - Myocardial fibrosis [Unknown]
  - Hepatic steatosis [Unknown]
  - Pulmonary congestion [Unknown]
  - Cardiac steatosis [Unknown]
  - Hypertensive heart disease [Fatal]
  - Cardiomegaly [Unknown]
  - Glomerulosclerosis [Unknown]
  - Diverticulum [Unknown]
  - Gastrointestinal haemorrhage [Unknown]
  - Left ventricular hypertrophy [Unknown]
  - Emphysema [Unknown]
  - Arteriosclerosis coronary artery [Unknown]
  - Cholelithiasis [Unknown]
  - Learning disorder [Unknown]
  - Drug dependence [Unknown]
  - Pneumonia [Unknown]
